FAERS Safety Report 5834951-8 (Version None)
Quarter: 2008Q3

REPORT INFORMATION
  Report Type: 
  Country: None (occurrence: None)
  Receive Date: 20080806
  Receipt Date: 20080729
  Transmission Date: 20090109
  Serious: Yes (Other)
  Sender: FDA-Public Use
  Company Number: US-JNJFOC-20080800222

PATIENT
  Age: 35 Year
  Sex: Female

DRUGS (2)
  1. ASPIRIN [Suspect]
     Indication: ANTICOAGULANT THERAPY
  2. LOW MOLECULAR WEIGHT HEPARIN [Suspect]
     Indication: ANTICOAGULANT THERAPY

REACTIONS (2)
  - DRUG EXPOSURE DURING PREGNANCY [None]
  - HAEMATOMA [None]
